FAERS Safety Report 18328459 (Version 1)
Quarter: 2020Q3

REPORT INFORMATION
  Report Type: Report from Study
  Country: GB (occurrence: GB)
  Receive Date: 20200930
  Receipt Date: 20200930
  Transmission Date: 20201103
  Serious: Yes (Hospitalization)
  Sender: FDA-Public Use
  Company Number: NVSC2020GB215489

PATIENT
  Sex: Female

DRUGS (4)
  1. HYRIMOZ [Suspect]
     Active Substance: ADALIMUMAB-ADAZ
     Dosage: 40 MG, Q2W
     Route: 058
  2. HYRIMOZ [Suspect]
     Active Substance: ADALIMUMAB-ADAZ
     Dosage: 40MG/0.8ML, EOW (EVERY OTHER WEEK)
     Route: 065
     Dates: start: 20200921
  3. HYRIMOZ [Suspect]
     Active Substance: ADALIMUMAB-ADAZ
     Indication: CROHN^S DISEASE
     Dosage: 160 MG, Q2W (WEEK 0)
     Route: 058
     Dates: start: 20200629
  4. HYRIMOZ [Suspect]
     Active Substance: ADALIMUMAB-ADAZ
     Dosage: 80 MG, Q2W  (WEEK 2)
     Route: 058

REACTIONS (4)
  - Heart rate decreased [Unknown]
  - Headache [Not Recovered/Not Resolved]
  - Loss of consciousness [Unknown]
  - Dehydration [Unknown]
